FAERS Safety Report 8211341-4 (Version None)
Quarter: 2012Q1

REPORT INFORMATION
  Report Type: 
  Country: None (occurrence: None)
  Receive Date: 20120315
  Receipt Date: 20120315
  Transmission Date: 20120608
  Serious: Yes (Other)
  Sender: FDA-Public Use
  Company Number: None

PATIENT

DRUGS (1)
  1. HALOPERIDOL [Suspect]

REACTIONS (2)
  - PROTRUSION TONGUE [None]
  - EXTRAPYRAMIDAL DISORDER [None]
